FAERS Safety Report 4631405-1 (Version None)
Quarter: 2005Q2

REPORT INFORMATION
  Report Type: 
  Country: None (occurrence: None)
  Receive Date: 20050407
  Receipt Date: 20050328
  Transmission Date: 20051028
  Serious: Yes (Life-Threatening)
  Sender: FDA-Public Use
  Company Number: 05H-163-0295472-00

PATIENT
  Age: 19 Year
  Sex: Male

DRUGS (3)
  1. LIDOCAINE HCL W/ EPINEPHRINE [Suspect]
     Indication: ANAESTHESIA
     Dosage: INJECTION
     Dates: start: 20050328, end: 20050328
  2. COCAINE [Suspect]
     Dosage: NASAL
     Route: 045
     Dates: start: 20050328, end: 20050328
  3. PROPOFOL [Suspect]
     Indication: ANAESTHESIA
     Dates: start: 20050328, end: 20050328

REACTIONS (7)
  - ANAESTHETIC COMPLICATION [None]
  - BLOOD PRESSURE INCREASED [None]
  - CARDIO-RESPIRATORY ARREST [None]
  - LIVEDO RETICULARIS [None]
  - PHARMACEUTICAL PRODUCT COMPLAINT [None]
  - PULMONARY OEDEMA [None]
  - VENTRICULAR FIBRILLATION [None]
